FAERS Safety Report 12067401 (Version 1)
Quarter: 2016Q1

REPORT INFORMATION
  Report Type: Spontaneous
  Country: US (occurrence: None)
  Receive Date: 20160210
  Receipt Date: 20160210
  Transmission Date: 20160526
  Serious: Yes (Disabling)
  Sender: FDA-Public Use
  Company Number: None

PATIENT
  Age: 19 Year
  Sex: Male
  Weight: 61.69 kg

DRUGS (3)
  1. ALMPHETAMINE [Concomitant]
  2. CALCIUM SUPPLEMENTS [Concomitant]
     Active Substance: CALCIUM
  3. METHYLPHENIDATE HCL 5-25 MG [Suspect]
     Active Substance: METHYLPHENIDATE HYDROCHLORIDE
     Indication: ATTENTION DEFICIT/HYPERACTIVITY DISORDER
     Dosage: 5 MG, TWICE DAILY, TAKEN BY MOUTH
     Route: 048
     Dates: start: 20060131, end: 20140131

REACTIONS (7)
  - Growth retardation [None]
  - Cognitive disorder [None]
  - Insomnia [None]
  - Memory impairment [None]
  - Weight decreased [None]
  - Anxiety [None]
  - Mood altered [None]

NARRATIVE: CASE EVENT DATE: 20160201
